FAERS Safety Report 16586896 (Version 1)
Quarter: 2019Q3

REPORT INFORMATION
  Report Type: Spontaneous
  Country: US (occurrence: US)
  Receive Date: 20190717
  Receipt Date: 20190717
  Transmission Date: 20191004
  Serious: No
  Sender: FDA-Public Use
  Company Number: US-SA-2019SA187792

PATIENT
  Age: 53 Year
  Sex: Female
  Weight: 68 kg

DRUGS (13)
  1. EPINEPHRINE. [Concomitant]
     Active Substance: EPINEPHRINE
     Indication: ANAPHYLACTIC REACTION
     Dosage: 0.3 MG
     Route: 030
     Dates: start: 20190228
  2. CEREZYME [Suspect]
     Active Substance: IMIGLUCERASE
     Indication: LIPIDOSIS
     Dosage: 3600 UNITS, QOW (400 UNITS VIAL)
     Route: 041
     Dates: start: 20170808
  3. CEREZYME [Suspect]
     Active Substance: IMIGLUCERASE
     Indication: GAUCHER^S DISEASE
  4. ATENOLOL. [Concomitant]
     Active Substance: ATENOLOL
     Dosage: 50 MG, QD
     Route: 048
     Dates: start: 20160317
  5. ACETAMINOPHEN. [Concomitant]
     Active Substance: ACETAMINOPHEN
     Indication: PREMEDICATION
     Dosage: 650 MG
     Route: 048
     Dates: start: 20190228
  6. STERILE WATER [Concomitant]
     Active Substance: WATER
     Dosage: 1 DF
     Route: 042
     Dates: start: 20190228
  7. NORMAL SALINE [Concomitant]
     Active Substance: SODIUM CHLORIDE
     Dosage: 0.9 %
     Route: 042
     Dates: start: 20190228
  8. SOLU-CORTEF [Concomitant]
     Active Substance: HYDROCORTISONE SODIUM SUCCINATE
     Dosage: 100 MG
     Route: 042
     Dates: start: 20190228
  9. ALEVE [Concomitant]
     Active Substance: NAPROXEN SODIUM
     Dosage: 1 DF, QD
     Route: 048
     Dates: start: 20160317
  10. HEPARIN [Concomitant]
     Active Substance: HEPARIN SODIUM
     Indication: FLUSHING
     Dosage: 100 DF
     Route: 042
     Dates: start: 20190228
  11. LEVONORGESTREL + ETINILESTRADIOL [Concomitant]
     Active Substance: ETHINYL ESTRADIOL\LEVONORGESTREL
     Dosage: 1 DF, QD
     Route: 048
     Dates: start: 20160306
  12. DIPHENHYDRAMINE. [Concomitant]
     Active Substance: DIPHENHYDRAMINE
     Indication: ANAPHYLACTIC REACTION
     Dosage: 25 MG
     Route: 048
     Dates: start: 20190228
  13. L.M.X. 4 PLUS [Concomitant]
     Indication: PREMEDICATION
     Dosage: 4 %
     Route: 061
     Dates: start: 20190228

REACTIONS (1)
  - Poor venous access [Unknown]
